FAERS Safety Report 9259933 (Version 2)
Quarter: 2014Q1

REPORT INFORMATION
  Report Type: Spontaneous
  Country: GB (occurrence: GB)
  Receive Date: 20130429
  Receipt Date: 20140120
  Transmission Date: 20141002
  Serious: Yes (Death, Hospitalization)
  Sender: FDA-Public Use
  Company Number: GB-ROCHE-1216498

PATIENT
  Age: 66 Year
  Sex: Male

DRUGS (4)
  1. RITUXIMAB [Suspect]
     Indication: PRODUCT USED FOR UNKNOWN INDICATION
     Route: 065
     Dates: start: 20130211
  2. RITUXIMAB [Suspect]
     Route: 065
     Dates: start: 20130212
  3. BENDAMUSTINE HYDROCHLORIDE [Suspect]
     Indication: CHRONIC LYMPHOCYTIC LEUKAEMIA
     Route: 065
     Dates: start: 20130114, end: 20130115
  4. BENDAMUSTINE HYDROCHLORIDE [Suspect]
     Indication: OFF LABEL USE
     Route: 065
     Dates: start: 20130211, end: 20130212

REACTIONS (4)
  - Herpes simplex [Fatal]
  - Hepatic failure [Fatal]
  - Sepsis [Fatal]
  - Rash [Recovered/Resolved]
